FAERS Safety Report 21672865 (Version 2)
Quarter: 2022Q4

REPORT INFORMATION
  Report Type: Report from Study
  Country: US (occurrence: None)
  Receive Date: 20221202
  Receipt Date: 20221205
  Transmission Date: 20230113
  Serious: Yes (Other)
  Sender: FDA-Public Use
  Company Number: US-ROCHE-3224828

PATIENT
  Age: 60 Year
  Sex: Female
  Weight: 113 kg

DRUGS (9)
  1. ATEZOLIZUMAB [Suspect]
     Active Substance: ATEZOLIZUMAB
     Indication: Triple negative breast cancer
     Dosage: DATE OF MOST RECENT DOSE OF ATEZOLIZUMAB PRIOR TO AE ONSET ON 18/MAR/2020
     Route: 041
     Dates: start: 20191001
  2. PACLITAXEL [Suspect]
     Active Substance: PACLITAXEL
     Indication: Triple negative breast cancer
     Dosage: DOSE OF LAST PACLITAXEL ADMINISTERED PRIOR TO AE ONSET (147 MG)?DATE OF MOST RECENT DOSE OF PACLITAX
     Route: 042
     Dates: start: 20191001
  3. DOXORUBICIN [Suspect]
     Active Substance: DOXORUBICIN
     Indication: Triple negative breast cancer
     Dosage: DOSE OF LAST DOXORUBICIN ADMINISTERED PRIOR TO AE ONSET (69 MG)?DATE OF MOST RECENT DOSE OF DOXORUBI
     Route: 042
     Dates: start: 20191226
  4. CYCLOPHOSPHAMIDE [Suspect]
     Active Substance: CYCLOPHOSPHAMIDE
     Indication: Triple negative breast cancer
     Dosage: DOSE OF LAST CYCLOPHOSPHAMIDE ADMINISTERED PRIOR TO AE ONSET 1380 MG?DATE OF MOST RECENT DOSE OF CYC
     Route: 042
     Dates: start: 20191226
  5. PREDNISONE [Concomitant]
     Active Substance: PREDNISONE
     Dates: start: 20200414, end: 20200805
  6. PEGFILGRASTIM [Concomitant]
     Active Substance: PEGFILGRASTIM
     Dosage: CYCLE 4?VISIT 1
     Route: 058
     Dates: start: 20191227, end: 20191227
  7. PEGFILGRASTIM [Concomitant]
     Active Substance: PEGFILGRASTIM
     Dosage: CYCLE 4?VISIT 2
     Route: 058
     Dates: start: 20200110, end: 20200110
  8. PEGFILGRASTIM [Concomitant]
     Active Substance: PEGFILGRASTIM
     Dosage: CYCLE 5?VISIT 1
     Route: 058
     Dates: start: 20200131, end: 20200131
  9. PEGFILGRASTIM [Concomitant]
     Active Substance: PEGFILGRASTIM
     Dosage: CYCLE 5?VISIT 2
     Route: 058
     Dates: start: 20200214, end: 20200214

REACTIONS (1)
  - Tubulointerstitial nephritis [Recovered/Resolved]

NARRATIVE: CASE EVENT DATE: 20200413
